FAERS Safety Report 17942356 (Version 1)
Quarter: 2020Q2

REPORT INFORMATION
  Report Type: Spontaneous
  Country: DE (occurrence: DE)
  Receive Date: 20200625
  Receipt Date: 20200625
  Transmission Date: 20200714
  Serious: Yes (Hospitalization)
  Sender: FDA-Public Use
  Company Number: DE-TEVA-2020-DE-1790609

PATIENT
  Age: 81 Year
  Sex: Female
  Weight: 40 kg

DRUGS (12)
  1. ACETYLSALICYLICSAURE [Concomitant]
     Dosage: 100 MILLIGRAM DAILY;  0-1-0-0
  2. INSULIN GLARGINE [Suspect]
     Active Substance: INSULIN GLARGINE
     Dosage: 450 IE, 0-0-8-0
  3. KALINOR-RETARD P 600MG [Concomitant]
     Dosage: 600 MG
  4. GALANTAMIN [Concomitant]
     Active Substance: GALANTAMINE
     Dosage: 24 MILLIGRAM DAILY; 0-0-1-0
  5. BISOPROLOL [Concomitant]
     Active Substance: BISOPROLOL
     Dosage: 2.5 MILLIGRAM DAILY;  1-0-0-0
  6. COLECALCIFEROL (VITAMIN D) [Concomitant]
     Dosage: 1000 IU (INTERNATIONAL UNIT) DAILY; 0-1-0-0
  7. ATORVASTATIN [Suspect]
     Active Substance: ATORVASTATIN
     Dosage: 40 MILLIGRAM DAILY; 0-0-1-0
     Route: 065
  8. PANTOPRAZOL [Concomitant]
     Active Substance: PANTOPRAZOLE SODIUM
     Dosage: 20 MILLIGRAM DAILY; 1-0-0-0
  9. CANDESARTAN. [Suspect]
     Active Substance: CANDESARTAN
     Dosage: 8 MILLIGRAM DAILY; 1-0-0-0
     Route: 065
  10. INSULIN GLULISINE [Suspect]
     Active Substance: INSULIN GLULISINE
     Dosage: 300 IU, ACCORDING TO THE SCHEME
  11. TORASEMID [Suspect]
     Active Substance: TORSEMIDE
     Dosage: 20 MG, 1-0.5-0-0, UNIT DOSE: 30 MG
     Route: 065
  12. CALCIUM 500 MG HEXAL [Concomitant]
     Dosage: 500 MILLIGRAM DAILY; 1-0-0-0

REACTIONS (6)
  - Confusional state [Unknown]
  - Somnolence [Unknown]
  - General physical health deterioration [Recovering/Resolving]
  - Muscular weakness [Recovering/Resolving]
  - Fall [Unknown]
  - Dehydration [Recovering/Resolving]

NARRATIVE: CASE EVENT DATE: 20191212
